FAERS Safety Report 20090410 (Version 1)
Quarter: 2021Q4

REPORT INFORMATION
  Report Type: Spontaneous
  Country: US (occurrence: None)
  Receive Date: 20211118
  Receipt Date: 20211118
  Transmission Date: 20220303
  Serious: Yes (Hospitalization, Other)
  Sender: FDA-Public Use
  Company Number: None

PATIENT
  Sex: Female

DRUGS (3)
  1. ACTEMRA [Suspect]
     Active Substance: TOCILIZUMAB
     Indication: Rheumatoid arthritis
     Dosage: FREQUENCY : WEEKLY;?
     Route: 058
     Dates: start: 20180605
  2. FISH OIL [Concomitant]
     Active Substance: FISH OIL
  3. PREDNISONE [Concomitant]
     Active Substance: PREDNISONE

REACTIONS (1)
  - Therapy interrupted [None]
